FAERS Safety Report 24253475 (Version 4)
Quarter: 2024Q4

REPORT INFORMATION
  Report Type: Spontaneous
  Country: US (occurrence: US)
  Receive Date: 20240827
  Receipt Date: 20241017
  Transmission Date: 20250115
  Serious: No
  Sender: PFIZER
  Company Number: US-PFIZER INC-202400241271

PATIENT
  Age: 18 Year
  Sex: Female
  Weight: 131.09 kg

DRUGS (6)
  1. GENOTROPIN [Suspect]
     Active Substance: SOMATROPIN
     Indication: Prader-Willi syndrome
     Dosage: 4 MG, 1X/DAY
  2. LISINOPRIL [Concomitant]
     Active Substance: LISINOPRIL
     Indication: Cardiac disorder
     Dosage: 10 MG, 1X/DAY (BY MOUTH)
  3. VICTOZA [Concomitant]
     Active Substance: LIRAGLUTIDE
     Indication: Weight decreased
     Dosage: 0.6 MG, DAILY (ONE WEEK)
  4. VICTOZA [Concomitant]
     Active Substance: LIRAGLUTIDE
     Dosage: 1.2 MG, DAILY (A WEEK)
  5. VICTOZA [Concomitant]
     Active Substance: LIRAGLUTIDE
     Dosage: 1.8 MG, DAILY (A WEEK)
  6. VICTOZA [Concomitant]
     Active Substance: LIRAGLUTIDE
     Dosage: 0.6 MG, DAILY (A WEEK)

REACTIONS (2)
  - Drug dose omission by device [Unknown]
  - Device issue [Unknown]
